FAERS Safety Report 23157800 (Version 3)
Quarter: 2024Q3

REPORT INFORMATION
  Report Type: Report from Study
  Country: US (occurrence: US)
  Receive Date: 20231108
  Receipt Date: 20240809
  Transmission Date: 20241016
  Serious: Yes (Hospitalization, Other)
  Sender: NOVARTIS
  Company Number: US-002147023-NVSC2023US238168

PATIENT
  Sex: Male

DRUGS (7)
  1. PLUVICTO [Suspect]
     Active Substance: LUTETIUM LU-177 VIPIVOTIDE TETRAXETAN
     Indication: Prostate cancer
     Dosage: UNK
     Route: 042
     Dates: start: 20230111
  2. PLUVICTO [Suspect]
     Active Substance: LUTETIUM LU-177 VIPIVOTIDE TETRAXETAN
     Indication: Lymphoma
  3. VALSARTAN [Concomitant]
     Active Substance: VALSARTAN
     Indication: Product used for unknown indication
     Dosage: 320 MG, QD
     Route: 065
  4. NIFEDIPINAEUDERMA [Concomitant]
     Indication: Product used for unknown indication
     Dosage: 30 MG, QD
     Route: 065
  5. PREDNISONE [Concomitant]
     Active Substance: PREDNISONE
     Indication: Product used for unknown indication
     Dosage: 5 MG (EVERY OTHER DAY)
     Route: 065
  6. XGEVA [Concomitant]
     Active Substance: DENOSUMAB
     Indication: Product used for unknown indication
     Dosage: UNK, BID
     Route: 065
  7. TYLENOL [Concomitant]
     Active Substance: ACETAMINOPHEN
     Indication: Product used for unknown indication
     Dosage: 650 MG (EVERY 4-6 HOURS)
     Route: 065

REACTIONS (6)
  - Pancytopenia [Not Recovered/Not Resolved]
  - Influenza [Unknown]
  - Nausea [Unknown]
  - Pyrexia [Unknown]
  - Vomiting [Unknown]
  - Product use in unapproved indication [Unknown]
